FAERS Safety Report 9279259 (Version 1)
Quarter: 2013Q2

REPORT INFORMATION
  Report Type: Spontaneous
  Country: US (occurrence: US)
  Receive Date: 20130508
  Receipt Date: 20130508
  Transmission Date: 20140414
  Serious: Yes (Death, Other)
  Sender: FDA-Public Use
  Company Number: US-BAXTER-2013BAX016364

PATIENT
  Age: 48 Year
  Sex: Male

DRUGS (12)
  1. GAMMAGARD LIQUID [Suspect]
     Indication: TRANSPLANT REJECTION
     Route: 042
  2. GAMMAGARD LIQUID [Suspect]
     Indication: OFF LABEL USE
     Route: 042
  3. MIRTAZAPINE [Suspect]
     Indication: PRODUCT USED FOR UNKNOWN INDICATION
     Route: 048
  4. CYCLOSPORINE [Concomitant]
     Indication: TRANSPLANT REJECTION
     Route: 065
  5. CYCLOSPORINE [Concomitant]
     Indication: TRANSPLANT REJECTION
  6. MYCOPHENOLATE MOFETIL [Concomitant]
     Indication: TRANSPLANT REJECTION
     Route: 065
  7. MYCOPHENOLATE MOFETIL [Concomitant]
     Indication: TRANSPLANT REJECTION
     Route: 065
  8. TACROLIMUS [Concomitant]
     Indication: TRANSPLANT REJECTION
     Route: 065
  9. TACROLIMUS [Concomitant]
     Indication: TRANSPLANT REJECTION
     Route: 065
  10. PREDNISONE [Concomitant]
     Indication: TRANSPLANT REJECTION
     Route: 065
  11. PREDNISONE [Concomitant]
     Indication: TRANSPLANT REJECTION
     Route: 065
  12. RITUXIMAB [Concomitant]
     Indication: PRODUCT USED FOR UNKNOWN INDICATION
     Route: 065

REACTIONS (2)
  - Drug ineffective [Unknown]
  - Death [Fatal]
